FAERS Safety Report 7242359-6 (Version None)
Quarter: 2011Q1

REPORT INFORMATION
  Report Type: 
  Country: None (occurrence: None)
  Receive Date: 20110125
  Receipt Date: 20110112
  Transmission Date: 20110831
  Serious: No
  Sender: FDA-Public Use
  Company Number: US-BIOGENIDEC-2010BI019927

PATIENT
  Age: 36 Year
  Sex: Female

DRUGS (2)
  1. AVONEX [Concomitant]
     Indication: MULTIPLE SCLEROSIS
     Route: 030
     Dates: start: 20080620
  2. TYSABRI [Suspect]
     Indication: MULTIPLE SCLEROSIS
     Route: 042
     Dates: start: 20100308

REACTIONS (18)
  - MIGRAINE [None]
  - HYPOAESTHESIA [None]
  - STRESS [None]
  - DRUG EFFECT DECREASED [None]
  - ASTHENIA [None]
  - PAIN IN EXTREMITY [None]
  - GAIT DISTURBANCE [None]
  - PAIN [None]
  - INFUSION SITE SWELLING [None]
  - UPPER RESPIRATORY TRACT INFECTION [None]
  - MULTIPLE SCLEROSIS RELAPSE [None]
  - NASOPHARYNGITIS [None]
  - OROPHARYNGEAL PAIN [None]
  - DYSPHAGIA [None]
  - VASODILATATION [None]
  - INFUSION SITE PAIN [None]
  - PHLEBITIS [None]
  - FATIGUE [None]
